FAERS Safety Report 7286625-7 (Version None)
Quarter: 2011Q1

REPORT INFORMATION
  Report Type: 
  Country: None (occurrence: None)
  Receive Date: 20110210
  Receipt Date: 20110210
  Transmission Date: 20110831
  Serious: Yes (Death, Hospitalization, Other)
  Sender: FDA-Public Use
  Company Number: BR-ABBOTT-10P-020-0693829-00

PATIENT
  Sex: Female

DRUGS (2)
  1. MANIPULATED DRUG [Concomitant]
     Indication: RHEUMATOID ARTHRITIS
  2. HUMIRA [Suspect]
     Indication: RHEUMATOID ARTHRITIS
     Route: 058
     Dates: start: 20101113

REACTIONS (13)
  - RENAL FAILURE [None]
  - COMA [None]
  - CEREBROVASCULAR ACCIDENT [None]
  - CARDIAC ARREST [None]
  - LUNG DISORDER [None]
  - PNEUMONIA [None]
  - INJECTION SITE WARMTH [None]
  - DEPRESSION [None]
  - MALNUTRITION [None]
  - PYREXIA [None]
  - THROMBOSIS [None]
  - OROPHARYNGEAL PAIN [None]
  - HYPERTENSION [None]
